FAERS Safety Report 4722618-9 (Version None)
Quarter: 2005Q3

REPORT INFORMATION
  Report Type: 
  Country: None (occurrence: None)
  Receive Date: 20050720
  Receipt Date: 20050707
  Transmission Date: 20060218
  Serious: Yes (Other)
  Sender: FDA-Public Use
  Company Number: 2005098173

PATIENT
  Age: 28 Year
  Sex: Female

DRUGS (3)
  1. GEODON [Suspect]
     Indication: HALLUCINATION
     Dosage: 20 MG (20 MG, 1 IN
     Dates: start: 20050321
  2. ATIVAN [Concomitant]
  3. RISPERDAL [Concomitant]

REACTIONS (5)
  - IMMUNE SYSTEM DISORDER [None]
  - MALAISE [None]
  - NASOPHARYNGITIS [None]
  - SEDATION [None]
  - UPPER RESPIRATORY TRACT INFECTION [None]
